FAERS Safety Report 7877490-5 (Version None)
Quarter: 2011Q4

REPORT INFORMATION
  Report Type: 
  Country: None (occurrence: None)
  Receive Date: 20111031
  Receipt Date: 20111025
  Transmission Date: 20120403
  Serious: Yes (Other)
  Sender: FDA-Public Use
  Company Number: US-PFIZER INC-2011239130

PATIENT
  Sex: Male

DRUGS (1)
  1. XALKORI [Suspect]
     Indication: LUNG NEOPLASM MALIGNANT
     Dosage: 250 MG, 2X/DAY
     Route: 048
     Dates: start: 20110925

REACTIONS (6)
  - THROMBOSIS [None]
  - EYELID OEDEMA [None]
  - HEADACHE [None]
  - OEDEMA PERIPHERAL [None]
  - EYE SWELLING [None]
  - FATIGUE [None]
